FAERS Safety Report 23099670 (Version 3)
Quarter: 2023Q4

REPORT INFORMATION
  Report Type: Spontaneous
  Country: US (occurrence: US)
  Receive Date: 20231024
  Receipt Date: 20231229
  Transmission Date: 20240110
  Serious: No
  Sender: FDA-Public Use
  Company Number: US-PFIZER INC-202300319780

PATIENT
  Age: 38 Year
  Sex: Female

DRUGS (2)
  1. XELJANZ XR [Suspect]
     Active Substance: TOFACITINIB CITRATE
     Dosage: 11 MG
     Dates: start: 202309
  2. XELJANZ XR [Suspect]
     Active Substance: TOFACITINIB CITRATE
     Dosage: 11 MG
     Dates: start: 202309

REACTIONS (9)
  - Road traffic accident [Unknown]
  - Somnolence [Unknown]
  - Insomnia [Unknown]
  - Limb mass [Unknown]
  - Joint stiffness [Unknown]
  - Illness [Unknown]
  - Pain in extremity [Unknown]
  - Arthralgia [Unknown]
  - Product dose omission issue [Unknown]

NARRATIVE: CASE EVENT DATE: 20230901
